FAERS Safety Report 9051896 (Version 1)
Quarter: 2013Q1

REPORT INFORMATION
  Report Type: Spontaneous
  Country: US (occurrence: None)
  Receive Date: 20130130
  Receipt Date: 20130130
  Transmission Date: 20140127
  Serious: Yes (Life-Threatening, Disabling)
  Sender: FDA-Public Use
  Company Number: None

PATIENT
  Age: 52 Year
  Sex: Male
  Weight: 86.18 kg

DRUGS (1)
  1. TRAMADOL HCL 50MG TAB VAMC [Suspect]
     Indication: PAIN
     Route: 048
     Dates: start: 20121202, end: 20130115

REACTIONS (4)
  - Gait disturbance [None]
  - Coordination abnormal [None]
  - Hyperhidrosis [None]
  - Vitamin B12 deficiency [None]
